FAERS Safety Report 23889027 (Version 12)
Quarter: 2024Q3

REPORT INFORMATION
  Report Type: Report from Study
  Country: US (occurrence: US)
  Receive Date: 20240523
  Receipt Date: 20240816
  Transmission Date: 20241017
  Serious: Yes (Hospitalization, Other)
  Sender: SANDOZ
  Company Number: US-SANDOZ-SDZ2024US050169

PATIENT
  Sex: Female
  Weight: 93.424 kg

DRUGS (8)
  1. PENICILLIN V POTASSIUM [Suspect]
     Active Substance: PENICILLIN V POTASSIUM
     Indication: Product used for unknown indication
     Dosage: UNK
     Route: 065
  2. TREPROSTINIL [Suspect]
     Active Substance: TREPROSTINIL
     Dosage: 30 NG/KG/ MIN, CONT
     Route: 042
  3. TREPROSTINIL [Suspect]
     Active Substance: TREPROSTINIL
     Dosage: 38 NG/KG/MIN, CONT
     Route: 042
     Dates: start: 20240520
  4. TREPROSTINIL [Suspect]
     Active Substance: TREPROSTINIL
     Indication: Pulmonary arterial hypertension
     Dosage: 15NG/KG/MIN, CONTINUOUS
     Route: 065
  5. TREPROSTINIL [Suspect]
     Active Substance: TREPROSTINIL
     Dosage: 29 NG/KG/MIN, CONT
     Route: 042
  6. TREPROSTINIL [Suspect]
     Active Substance: TREPROSTINIL
     Dosage: 36 NG/KG/MIN
     Route: 042
  7. AMLODIPINE [Concomitant]
     Active Substance: AMLODIPINE BESYLATE
     Indication: Product used for unknown indication
     Dosage: UNK
     Route: 065
  8. TADALAFIL [Concomitant]
     Active Substance: TADALAFIL
     Indication: Product used for unknown indication
     Dosage: UNK
     Route: 065

REACTIONS (18)
  - Renal impairment [Unknown]
  - Blood pressure systolic increased [Unknown]
  - Fluid retention [Unknown]
  - Eructation [Unknown]
  - Palpitations [Unknown]
  - Flatulence [Unknown]
  - Headache [Unknown]
  - Vomiting [Unknown]
  - Oedema peripheral [Unknown]
  - Dyspnoea [Unknown]
  - Joint swelling [Unknown]
  - Diarrhoea [Unknown]
  - Psoriasis [Unknown]
  - Back pain [Unknown]
  - Infusion site pruritus [Unknown]
  - Fungal skin infection [Unknown]
  - Rash pruritic [Unknown]
  - Catheter site infection [Unknown]
